FAERS Safety Report 12603466 (Version 3)
Quarter: 2016Q3

REPORT INFORMATION
  Report Type: Spontaneous
  Country: FR (occurrence: FR)
  Receive Date: 20160728
  Receipt Date: 20160922
  Transmission Date: 20161109
  Serious: Yes (Death, Other)
  Sender: FDA-Public Use
  Company Number: FR-PFIZER INC-2016356782

PATIENT
  Age: 79 Year
  Sex: Male

DRUGS (9)
  1. METHYLPREDNISOLONE. [Interacting]
     Active Substance: METHYLPREDNISOLONE
     Dosage: 30 MG, DAILY
  2. PIPERACILLIN/TAZOBACTAM [Concomitant]
     Active Substance: PIPERACILLIN SODIUM\TAZOBACTAM SODIUM
     Dosage: UNK
  3. ERLOTINIB [Interacting]
     Active Substance: ERLOTINIB
     Indication: SQUAMOUS CELL CARCINOMA
     Dosage: 150 MG, DAILY
  4. DIOSMECTITE [Concomitant]
     Active Substance: MONTMORILLONITE
     Indication: PRERENAL FAILURE
     Dosage: UNK
  5. LOPERAMIDE [Concomitant]
     Active Substance: LOPERAMIDE
     Indication: PRERENAL FAILURE
     Dosage: UNK
  6. CIPROFLOXACIN. [Suspect]
     Active Substance: CIPROFLOXACIN
     Dosage: UNK
  7. PREDNISOLONE. [Interacting]
     Active Substance: PREDNISOLONE
     Dosage: 20 MG/DAY TO 10 MG/DAY
  8. PACLITAXEL. [Interacting]
     Active Substance: PACLITAXEL
     Indication: SQUAMOUS CELL CARCINOMA
     Dosage: UNK
  9. RACECADOTRIL [Interacting]
     Active Substance: RACECADOTRIL
     Indication: DIARRHOEA
     Dosage: UNK

REACTIONS (4)
  - Overdose [Fatal]
  - Gastrointestinal perforation [Fatal]
  - Pneumoperitoneum [Fatal]
  - Drug interaction [Unknown]
